FAERS Safety Report 5692901-1 (Version None)
Quarter: 2008Q2

REPORT INFORMATION
  Report Type: 
  Country: None (occurrence: None)
  Receive Date: 20080327
  Receipt Date: 20080211
  Transmission Date: 20081010
  Serious: Yes (Other)
  Sender: FDA-Public Use
  Company Number: A03200800561

PATIENT
  Age: 87 Year
  Sex: Male

DRUGS (5)
  1. AMBIEN CR [Suspect]
     Indication: INSOMNIA
     Dosage: 12.5 MG HS - ORAL
     Route: 048
     Dates: start: 20080210
  2. METOPROLOL SUCCINATE [Concomitant]
  3. AMIODARONE HCL [Concomitant]
  4. MAGNESIUM [Concomitant]
  5. ACETYLSALICYLIC ACID SRT [Concomitant]

REACTIONS (2)
  - DIZZINESS [None]
  - HALLUCINATION [None]
